FAERS Safety Report 6149644-X (Version None)
Quarter: 2009Q2

REPORT INFORMATION
  Report Type: 
  Country: None (occurrence: None)
  Receive Date: 20090409
  Receipt Date: 20090330
  Transmission Date: 20091009
  Serious: Yes (Other)
  Sender: FDA-Public Use
  Company Number: ES-AVENTIS-200911665EU

PATIENT
  Age: 54 Year
  Sex: Female

DRUGS (5)
  1. CLEXANE [Suspect]
     Route: 058
     Dates: start: 20090202, end: 20090223
  2. PRIMPERAN                          /00041901/ [Suspect]
     Indication: VOMITING
     Route: 042
     Dates: start: 20090210
  3. PARACETAMOL [Suspect]
     Indication: PAIN
     Route: 042
     Dates: start: 20090210
  4. NOLOTIL                            /00473101/ [Suspect]
     Indication: PAIN
     Route: 042
     Dates: start: 20090210, end: 20090223
  5. INSULIN ISOPHANE [Concomitant]
     Route: 058
     Dates: start: 20090210

REACTIONS (1)
  - AGRANULOCYTOSIS [None]
